FAERS Safety Report 16939093 (Version 1)
Quarter: 2019Q4

REPORT INFORMATION
  Report Type: Spontaneous
  Country: CN (occurrence: CN)
  Receive Date: 20191020
  Receipt Date: 20191020
  Transmission Date: 20200122
  Serious: Yes (Hospitalization)
  Sender: FDA-Public Use
  Company Number: CN-ROCHE-2435742

PATIENT
  Age: 52 Year
  Sex: Female
  Weight: 59 kg

DRUGS (14)
  1. PEMETREXED DISODIUM [Suspect]
     Active Substance: PEMETREXED DISODIUM
     Indication: ADENOCARCINOMA
  2. AVASTIN [Suspect]
     Active Substance: BEVACIZUMAB
     Indication: METASTASES TO HEART
  3. PANTOPRAZOLE [Concomitant]
     Active Substance: PANTOPRAZOLE
  4. MEROPENEM. [Concomitant]
     Active Substance: MEROPENEM
  5. PEMETREXED DISODIUM [Suspect]
     Active Substance: PEMETREXED DISODIUM
     Indication: LUNG NEOPLASM MALIGNANT
     Route: 041
     Dates: start: 20190918
  6. DEXAMETHASONE. [Concomitant]
     Active Substance: DEXAMETHASONE
  7. PHLOROGLUCINOL [Concomitant]
     Active Substance: PHLOROGLUCINOL
  8. AVASTIN [Suspect]
     Active Substance: BEVACIZUMAB
     Indication: ADENOCARCINOMA
  9. FOLIC ACID. [Concomitant]
     Active Substance: FOLIC ACID
  10. SULBACTAM SODIUM [Concomitant]
     Active Substance: SULBACTAM SODIUM
  11. CEFOPERAZONE SODIUM [Concomitant]
     Active Substance: CEFOPERAZONE SODIUM
  12. AVASTIN [Suspect]
     Active Substance: BEVACIZUMAB
     Indication: LUNG NEOPLASM MALIGNANT
     Route: 041
     Dates: start: 20190918
  13. PEMETREXED DISODIUM [Suspect]
     Active Substance: PEMETREXED DISODIUM
     Indication: METASTASES TO HEART
  14. DICLOFENAC SODIUM. [Concomitant]
     Active Substance: DICLOFENAC SODIUM

REACTIONS (7)
  - Vomiting [Unknown]
  - Temperature intolerance [Unknown]
  - Bone marrow failure [Recovering/Resolving]
  - Abdominal pain [Recovering/Resolving]
  - Nausea [Unknown]
  - Pyrexia [Recovered/Resolved]
  - Asthenia [Unknown]

NARRATIVE: CASE EVENT DATE: 20190921
